FAERS Safety Report 4735900-6 (Version None)
Quarter: 2005Q3

REPORT INFORMATION
  Report Type: 
  Country: None (occurrence: None)
  Receive Date: 20050721
  Receipt Date: 20050421
  Transmission Date: 20060218
  Serious: No
  Sender: FDA-Public Use
  Company Number: 2005SP000291

PATIENT
  Age: 31 Year
  Sex: Female
  Weight: 81.6475 kg

DRUGS (6)
  1. LUNESTA [Suspect]
     Dosage: MG HS ORAL
     Route: 048
     Dates: start: 20050420
  2. LUNESTA [Suspect]
     Dosage: 2 MG;X1;ORAL
     Route: 048
     Dates: start: 20050421
  3. PAXIL [Concomitant]
  4. DEPAKOTE [Concomitant]
  5. YASMIN [Concomitant]
  6. AMBIEN [Concomitant]

REACTIONS (3)
  - DRUG INEFFECTIVE [None]
  - HEADACHE [None]
  - MIDDLE INSOMNIA [None]
